FAERS Safety Report 4267002-X (Version None)
Quarter: 2004Q1

REPORT INFORMATION
  Report Type: 
  Country: None (occurrence: None)
  Receive Date: 20040107
  Receipt Date: 20031229
  Transmission Date: 20041129
  Serious: Yes (Death)
  Sender: FDA-Public Use
  Company Number: US-JNJFOC-20031205532

PATIENT
  Age: 85 Year
  Sex: Female

DRUGS (3)
  1. RISPERDAL [Suspect]
     Indication: DEMENTIA
     Dosage: 5 MG, 2 IN 1 DAY, ORAL; 0.25 MG, 1 IN 1 DAY, ORAL
     Route: 048
  2. RISPERDAL [Suspect]
     Indication: DEMENTIA ALZHEIMER'S TYPE
     Dosage: 5 MG, 2 IN 1 DAY, ORAL; 0.25 MG, 1 IN 1 DAY, ORAL
     Route: 048
  3. REMINYL [Suspect]
     Indication: DEMENTIA ALZHEIMER'S TYPE
     Dosage: 8 MG, 2 IN 1 DAY, ORAL
     Route: 048

REACTIONS (2)
  - DRUG INTERACTION [None]
  - HIP FRACTURE [None]
